FAERS Safety Report 6453386-0 (Version None)
Quarter: 2009Q4

REPORT INFORMATION
  Report Type: 
  Country: None (occurrence: None)
  Receive Date: 20091124
  Receipt Date: 20091119
  Transmission Date: 20100525
  Serious: Yes (Life-Threatening, Other)
  Sender: FDA-Public Use
  Company Number: US-CELGENEUS-163-21880-09080935

PATIENT
  Sex: Female
  Weight: 56.069 kg

DRUGS (3)
  1. REVLIMID [Suspect]
     Indication: NON-HODGKIN'S LYMPHOMA
     Route: 048
     Dates: start: 20090714, end: 20091019
  2. REVLIMID [Suspect]
     Indication: LYMPHOMA
     Route: 048
     Dates: start: 20090501
  3. DEXAMETHASONE [Suspect]
     Indication: NON-HODGKIN'S LYMPHOMA
     Route: 048
     Dates: start: 20090716, end: 20091019

REACTIONS (1)
  - NEUTROPENIA [None]
